FAERS Safety Report 8941586 (Version 2)
Quarter: 2012Q4

REPORT INFORMATION
  Report Type: 
  Country: BR (occurrence: BR)
  Receive Date: 20121203
  Receipt Date: 20121206
  Transmission Date: 20130627
  Serious: Yes (Other)
  Sender: FDA-Public Use
  Company Number: BR-PFIZER INC-2012301730

PATIENT
  Age: 65 Year
  Sex: Female
  Weight: 92 kg

DRUGS (7)
  1. LYRICA [Suspect]
     Dosage: 75 mg (one capsule), 2x/day
     Dates: start: 201111
  2. ARTROLIVE [Concomitant]
  3. DIGEPLUS [Concomitant]
  4. DIOVAN ^NOVARTIS^ [Concomitant]
  5. DONAREN RETARD [Concomitant]
  6. LIPANON [Concomitant]
  7. RIVOTRIL [Concomitant]

REACTIONS (5)
  - Fibromyalgia [Unknown]
  - Hepatic steatosis [Unknown]
  - Memory impairment [Unknown]
  - Pyrexia [Unknown]
  - Emotional disorder [Unknown]
